FAERS Safety Report 17765245 (Version 3)
Quarter: 2020Q4

REPORT INFORMATION
  Report Type: Spontaneous
  Country: US (occurrence: US)
  Receive Date: 20200511
  Receipt Date: 20201002
  Transmission Date: 20210113
  Serious: No
  Sender: FDA-Public Use
  Company Number: US-PFIZER INC-2020045803

PATIENT
  Age: 64 Year
  Sex: Female

DRUGS (1)
  1. XELJANZ XR [Suspect]
     Active Substance: TOFACITINIB CITRATE
     Indication: RHEUMATOID ARTHRITIS
     Dosage: 11 MG, 1X/DAY
     Route: 048
     Dates: start: 201909

REACTIONS (7)
  - Influenza like illness [Unknown]
  - Malaise [Unknown]
  - Pain in extremity [Unknown]
  - Depressed mood [Unknown]
  - Therapeutic product effect incomplete [Unknown]
  - Osteoarthritis [Unknown]
  - Fatigue [Unknown]
